FAERS Safety Report 9711847 (Version 1)
Quarter: 2013Q4

REPORT INFORMATION
  Report Type: Spontaneous
  Country: US (occurrence: US)
  Receive Date: 20131126
  Receipt Date: 20131126
  Transmission Date: 20140711
  Serious: No
  Sender: FDA-Public Use
  Company Number: US-BRISTOL-MYERS SQUIBB COMPANY-19119346

PATIENT
  Age: 53 Year
  Sex: Female

DRUGS (11)
  1. BYDUREON 2MG VIAL + SYRINGE [Suspect]
     Indication: TYPE 2 DIABETES MELLITUS
     Route: 058
  2. KRISTALOSE [Concomitant]
     Indication: ENCEPHALOPATHY
  3. XIFAXAN [Concomitant]
     Dosage: 2 PILLS QD
  4. SYNTHROID [Concomitant]
  5. FUROSEMIDE [Concomitant]
  6. SPIRONOLACTONE [Concomitant]
  7. LEXAPRO [Concomitant]
  8. XANAX [Concomitant]
  9. URSODIOL [Concomitant]
  10. OXYCODONE [Concomitant]
  11. TRAZODONE HCL [Concomitant]

REACTIONS (2)
  - Injection site pain [Unknown]
  - Injection site extravasation [Unknown]
